FAERS Safety Report 13883127 (Version 3)
Quarter: 2023Q4

REPORT INFORMATION
  Report Type: Spontaneous
  Country: US (occurrence: US)
  Receive Date: 20170818
  Receipt Date: 20231116
  Transmission Date: 20240109
  Serious: Yes (Death, Other)
  Sender: FDA-Public Use
  Company Number: US-MALLINCKRODT-T201703409

PATIENT
  Age: 83 Year
  Sex: Male

DRUGS (1)
  1. UVADEX [Suspect]
     Active Substance: METHOXSALEN
     Indication: Cutaneous T-cell lymphoma
     Dosage: UNKNOWN

REACTIONS (2)
  - Thrombosis [Fatal]
  - Skin squamous cell carcinoma metastatic [Not Recovered/Not Resolved]
